FAERS Safety Report 22155655 (Version 1)
Quarter: 2023Q1

REPORT INFORMATION
  Report Type: Spontaneous
  Country: US (occurrence: US)
  Receive Date: 20230330
  Receipt Date: 20230330
  Transmission Date: 20230418
  Serious: Yes (Other)
  Sender: FDA-Public Use
  Company Number: US-SUN PHARMACEUTICAL INDUSTRIES LTD-2023R1-383086

PATIENT
  Age: 18 Year
  Sex: Female

DRUGS (2)
  1. SODIUM NITROPRUSSIDE [Suspect]
     Active Substance: SODIUM NITROPRUSSIDE
     Indication: Cardiogenic shock
     Dosage: UNK
     Route: 065
  2. MILRINONE [Suspect]
     Active Substance: MILRINONE
     Indication: Cardiogenic shock
     Dosage: UNK
     Route: 065

REACTIONS (1)
  - Condition aggravated [Unknown]
